FAERS Safety Report 21457274 (Version 1)
Quarter: 2022Q4

REPORT INFORMATION
  Report Type: Spontaneous
  Country: US (occurrence: None)
  Receive Date: 20221013
  Receipt Date: 20221013
  Transmission Date: 20230113
  Serious: No
  Sender: FDA-Public Use
  Company Number: None

PATIENT

DRUGS (1)
  1. DOCUSATE [Suspect]
     Active Substance: DOCUSATE

REACTIONS (2)
  - Product label issue [None]
  - Product blister packaging issue [None]
